FAERS Safety Report 9891320 (Version 1)
Quarter: 2014Q1

REPORT INFORMATION
  Report Type: Spontaneous
  Country: US (occurrence: None)
  Receive Date: 20140211
  Receipt Date: 20140211
  Transmission Date: 20141002
  Serious: Yes (Hospitalization)
  Sender: FDA-Public Use
  Company Number: None

PATIENT
  Sex: 0

DRUGS (2)
  1. MORPHINE [Suspect]
     Indication: BACK PAIN
     Route: 048
     Dates: start: 20131028, end: 20131101
  2. HYDROMORPHONE [Suspect]
     Route: 048
     Dates: start: 20131028, end: 20131101

REACTIONS (2)
  - Somnolence [None]
  - Inadequate analgesia [None]
